FAERS Safety Report 19271085 (Version 2)
Quarter: 2021Q2

REPORT INFORMATION
  Report Type: Spontaneous
  Country: BR (occurrence: BR)
  Receive Date: 20210518
  Receipt Date: 20210615
  Transmission Date: 20210717
  Serious: Yes (Other)
  Sender: FDA-Public Use
  Company Number: BR-TAKEDA-2021TUS031259

PATIENT
  Sex: Male
  Weight: 75 kg

DRUGS (1)
  1. BRINTELLIX [Suspect]
     Active Substance: VORTIOXETINE HYDROBROMIDE
     Indication: ANXIETY
     Dosage: 5 MILLIGRAM, QD
     Route: 048
     Dates: start: 202009

REACTIONS (2)
  - Erectile dysfunction [Not Recovered/Not Resolved]
  - Product use in unapproved indication [Unknown]

NARRATIVE: CASE EVENT DATE: 202012
